FAERS Safety Report 5797956-1 (Version None)
Quarter: 2008Q3

REPORT INFORMATION
  Report Type: 
  Country: None (occurrence: None)
  Receive Date: 20080702
  Receipt Date: 20080619
  Transmission Date: 20090109
  Serious: Yes (Disabling, Other)
  Sender: FDA-Public Use
  Company Number: AU-PFIZER INC-2008052318

PATIENT
  Sex: Female
  Weight: 78 kg

DRUGS (22)
  1. LINEZOLID [Suspect]
     Route: 042
     Dates: start: 20080609, end: 20080613
  2. LINEZOLID [Suspect]
     Route: 042
     Dates: start: 20080613, end: 20080614
  3. IDARUBICIN HCL [Suspect]
     Indication: ACUTE MYELOID LEUKAEMIA
  4. ETOPOSIDE [Suspect]
     Indication: ACUTE MYELOID LEUKAEMIA
  5. CYTARABINE [Suspect]
     Indication: ACUTE MYELOID LEUKAEMIA
  6. PEGFILGRASTIM [Suspect]
     Indication: ACUTE MYELOID LEUKAEMIA
  7. BLINDED IDARUBICIN [Suspect]
     Indication: MUCOSAL INFLAMMATION
     Route: 042
  8. FILGRASTIM [Suspect]
     Indication: ACUTE MYELOID LEUKAEMIA
     Route: 048
  9. VANCOMYCIN [Concomitant]
     Route: 042
     Dates: start: 20080526, end: 20080609
  10. NORETHINDRONE ACETATE [Concomitant]
     Route: 048
     Dates: start: 20080511, end: 20080609
  11. VALTREX [Concomitant]
     Route: 048
     Dates: start: 20080504, end: 20080609
  12. FLUCONAZOLE [Concomitant]
     Route: 048
     Dates: start: 20080508, end: 20080609
  13. ACETAMINOPHEN [Concomitant]
     Route: 048
     Dates: start: 20080516, end: 20080614
  14. PROMETHAZINE HCL [Concomitant]
     Route: 048
     Dates: start: 20080516, end: 20080612
  15. NILSTAT [Concomitant]
     Route: 048
  16. AZTREONAM [Concomitant]
     Route: 042
     Dates: start: 20080508, end: 20080610
  17. METRONIDAZOLE HCL [Concomitant]
     Route: 042
     Dates: start: 20080526, end: 20080610
  18. SLOW-K [Concomitant]
     Route: 048
     Dates: start: 20080610, end: 20080614
  19. VALACYCLOVIR [Concomitant]
     Route: 048
     Dates: start: 20080609, end: 20080612
  20. NORETHINDRONE ACETATE [Concomitant]
     Route: 048
     Dates: start: 20080610, end: 20080613
  21. TIGECYCLINE [Concomitant]
     Route: 042
     Dates: start: 20080614, end: 20080615
  22. GENTAMICIN [Concomitant]
     Route: 042
     Dates: start: 20080525, end: 20080609

REACTIONS (1)
  - PSYCHOTIC DISORDER [None]
